FAERS Safety Report 11113766 (Version 6)
Quarter: 2015Q4

REPORT INFORMATION
  Report Type: Report from Study
  Country: US (occurrence: US)
  Receive Date: 20150514
  Receipt Date: 20151022
  Transmission Date: 20160304
  Serious: Yes (Hospitalization)
  Sender: FDA-Public Use
  Company Number: US-ALEXION-A201501662

PATIENT
  Sex: Male

DRUGS (2)
  1. STEROID ANTIBACTERIALS [Concomitant]
     Active Substance: UNSPECIFIED INGREDIENT
     Indication: PRODUCT USED FOR UNKNOWN INDICATION
     Dosage: UNK
     Route: 065
  2. SOLIRIS [Suspect]
     Active Substance: ECULIZUMAB
     Indication: PAROXYSMAL NOCTURNAL HAEMOGLOBINURIA
     Dosage: UNK
     Route: 042

REACTIONS (12)
  - Viral infection [Recovered/Resolved]
  - Fatigue [Unknown]
  - Cough [Not Recovered/Not Resolved]
  - Dyspnoea [Not Recovered/Not Resolved]
  - Laceration [Recovered/Resolved]
  - Nausea [Unknown]
  - Haemoglobin abnormal [Unknown]
  - Pyrexia [Recovered/Resolved]
  - Unevaluable event [Unknown]
  - Blood lactate dehydrogenase abnormal [Unknown]
  - Pyrexia [Recovered/Resolved]
  - Sinusitis [Not Recovered/Not Resolved]

NARRATIVE: CASE EVENT DATE: 20150606
